FAERS Safety Report 10552551 (Version 1)
Quarter: 2014Q4

REPORT INFORMATION
  Report Type: Spontaneous
  Country: US (occurrence: None)
  Receive Date: 20141023
  Receipt Date: 20141023
  Transmission Date: 20150529
  Serious: No
  Sender: FDA-Public Use
  Company Number: AP356-01342-SPO-US

PATIENT
  Age: 63 Year
  Sex: Female
  Weight: 85.7 kg

DRUGS (5)
  1. MAXZIDE ( DYAZIDE) [Concomitant]
  2. FLURAZEPAM [Concomitant]
     Active Substance: FLURAZEPAM\FLURAZEPAM HYDROCHLORIDE
  3. BELVIQ [Suspect]
     Active Substance: LORCASERIN HYDROCHLORIDE
     Indication: WEIGHT DECREASED
     Dosage: 10 MG, 1 IN 1 D, ORAL
     Route: 048
     Dates: start: 20140829, end: 20140829
  4. POTASSIUM [Concomitant]
     Active Substance: POTASSIUM
  5. AZOR ( ALPRAZOLAM) [Concomitant]

REACTIONS (2)
  - Dizziness [None]
  - Back pain [None]

NARRATIVE: CASE EVENT DATE: 20140829
